FAERS Safety Report 8062491-7 (Version None)
Quarter: 2012Q1

REPORT INFORMATION
  Report Type: 
  Country: None (occurrence: None)
  Receive Date: 20120118
  Receipt Date: 20120104
  Transmission Date: 20120608
  Serious: Yes (Life-Threatening, Hospitalization)
  Sender: FDA-Public Use
  Company Number: 2011HGS-002714

PATIENT
  Age: 58 Year
  Sex: Female

DRUGS (22)
  1. BENLYSTA [Suspect]
     Indication: SYSTEMIC LUPUS ERYTHEMATOSUS
     Dosage: 1000 MG, 1 IN 1 M, INTRAVENOUS DRIP
     Route: 041
     Dates: start: 20111018, end: 20111018
  2. CARDURA [Concomitant]
  3. POTASSIUM CHLORIDE ER (POTASSIUM CHLORIDE) (POTASSIUM CHLORIDE) [Concomitant]
  4. DEXAMETHASONE [Concomitant]
  5. FUROSEMIDE [Concomitant]
  6. METHOTREXATE SODIUM [Concomitant]
  7. MORPHINE [Concomitant]
  8. MELOXICAM [Concomitant]
  9. AMITIZA (LUBIPROSTONE) (LUBIPROSTONE) [Concomitant]
  10. SPIRONOLACTONE [Concomitant]
  11. SAVELLA (MILNACIPRAN HYDROCHLORIDE) (MILNACIPRAN HYDROCHLORIDE) [Concomitant]
  12. BUPROPION HCL XL (BUPROPION HYDROCHLORIDE) (BUPROPION HYDROCHLORIDE) [Concomitant]
  13. MORPHINE ER (MORPHONE) (MORPHINE) [Concomitant]
  14. ZOLPIDEM (ZOLPIDEM) (ZOLPIDEM) [Concomitant]
  15. POLYETHYLENE GLYCOL 3350 (MACROGOL 3350) (MACROGOL 3350) [Concomitant]
  16. RITUXAN [Concomitant]
  17. PROAIR HFA (SALBUTAMOL SULFATE) (SALBUTAMOL SULFATE) [Concomitant]
  18. AZATHIOPRINE (AZATHIOPRINE) (AZATHIOPRINE) [Concomitant]
  19. LYRICA [Concomitant]
  20. ADVAIR DISKUS (SERETIDE) (FLUTICASONE PROPIONATE, SALMETEROL XINAFOATE [Concomitant]
  21. SPIRIVA (TIOTROPIUM BROMIDE) (TIOTROPIUM BROMIDE) [Concomitant]
  22. RELISTOR (METHYLNALTREXONE BROMIDE) (METHYLNALTREXONE BROMIDE) [Concomitant]

REACTIONS (5)
  - HYPOXIA [None]
  - CYANOSIS [None]
  - ANAPHYLACTIC REACTION [None]
  - CONVULSION [None]
  - INFUSION RELATED REACTION [None]
